FAERS Safety Report 11692874 (Version 1)
Quarter: 2015Q4

REPORT INFORMATION
  Report Type: Spontaneous
  Country: US (occurrence: US)
  Receive Date: 20151103
  Receipt Date: 20151103
  Transmission Date: 20160304
  Serious: Yes (Other)
  Sender: FDA-Public Use
  Company Number: US-ASTRAZENECA-2015SF04322

PATIENT
  Age: 32 Year
  Sex: Male

DRUGS (2)
  1. CREATINE [Concomitant]
     Active Substance: CREATINE
     Indication: MUSCLE BUILDING THERAPY
  2. ZOMIG [Suspect]
     Active Substance: ZOLMITRIPTAN
     Indication: MIGRAINE
     Route: 048

REACTIONS (1)
  - Rhabdomyolysis [Unknown]
